FAERS Safety Report 4307558-1 (Version None)
Quarter: 2004Q1

REPORT INFORMATION
  Report Type: 
  Country: None (occurrence: None)
  Receive Date: 20040227
  Receipt Date: 20040227
  Transmission Date: 20041129
  Serious: Yes (Death)
  Sender: FDA-Public Use
  Company Number: None

PATIENT
  Age: 61 Year
  Sex: Female
  Weight: 91.6266 kg

DRUGS (3)
  1. ZESTORETIC [Suspect]
  2. CATAPRESS [Concomitant]
  3. ADALAT [Concomitant]

REACTIONS (1)
  - ANAPHYLACTIC REACTION [None]
